FAERS Safety Report 8569198-8 (Version None)
Quarter: 2012Q3

REPORT INFORMATION
  Report Type: 
  Country: None (occurrence: None)
  Receive Date: 20120803
  Receipt Date: 20120216
  Transmission Date: 20120928
  Serious: No
  Sender: FDA-Public Use
  Company Number: US-ABBOTT-12P-163-0905157-00

PATIENT
  Sex: Male
  Weight: 62.652 kg

DRUGS (5)
  1. UNKNOWN MEDICATION [Concomitant]
     Indication: THYROID DISORDER
  2. ASPIRIN [Concomitant]
     Indication: PRODUCT USED FOR UNKNOWN INDICATION
  3. VITAMIN TAB [Concomitant]
     Indication: PRODUCT USED FOR UNKNOWN INDICATION
  4. NIASPAN [Suspect]
     Indication: LOW DENSITY LIPOPROTEIN ABNORMAL
     Dosage: AT BEDTIME
     Dates: start: 20120215
  5. NIASPAN [Suspect]
     Indication: HIGH DENSITY LIPOPROTEIN ABNORMAL

REACTIONS (2)
  - GASTRIC DISORDER [None]
  - UNEVALUABLE EVENT [None]
